FAERS Safety Report 15599107 (Version 1)
Quarter: 2018Q4

REPORT INFORMATION
  Report Type: Spontaneous
  Country: US (occurrence: US)
  Receive Date: 20181108
  Receipt Date: 20181108
  Transmission Date: 20190205
  Serious: Yes (Other)
  Sender: FDA-Public Use
  Company Number: PHEH2018US046675

PATIENT
  Sex: Male

DRUGS (1)
  1. GILENYA [Suspect]
     Active Substance: FINGOLIMOD HYDROCHLORIDE
     Indication: MULTIPLE SCLEROSIS
     Route: 065
     Dates: end: 20171002

REACTIONS (5)
  - Multiple sclerosis relapse [Unknown]
  - Heart rate decreased [Unknown]
  - Product dose omission [Unknown]
  - Memory impairment [Unknown]
  - Flushing [Unknown]
